FAERS Safety Report 13057869 (Version 1)
Quarter: 2016Q4

REPORT INFORMATION
  Report Type: Spontaneous
  Country: US (occurrence: US)
  Receive Date: 20161223
  Receipt Date: 20161223
  Transmission Date: 20170207
  Serious: Yes (Other)
  Sender: FDA-Public Use
  Company Number: US-PFIZER INC-2016583107

PATIENT
  Age: 59 Year
  Sex: Female

DRUGS (1)
  1. XELJANZ [Suspect]
     Active Substance: TOFACITINIB CITRATE
     Indication: RHEUMATOID ARTHRITIS
     Dosage: 5 MG, 2X/DAY
     Route: 048
     Dates: start: 20161028, end: 201611

REACTIONS (5)
  - Autoimmune disorder [Unknown]
  - Cough [Unknown]
  - Oesophageal pain [Unknown]
  - Nasal discomfort [Unknown]
  - Gastrointestinal disorder [Unknown]
